FAERS Safety Report 15905871 (Version 1)
Quarter: 2019Q1

REPORT INFORMATION
  Report Type: Spontaneous
  Country: US (occurrence: US)
  Receive Date: 20190204
  Receipt Date: 20190204
  Transmission Date: 20190417
  Serious: Yes (Other)
  Sender: FDA-Public Use
  Company Number: US-BAYER-2019-020288

PATIENT
  Sex: Female

DRUGS (2)
  1. MIRENA [Suspect]
     Active Substance: LEVONORGESTREL
     Dosage: 20 MCG/24HR, CONT
     Route: 015
     Dates: start: 20170109, end: 201803
  2. MIRENA [Suspect]
     Active Substance: LEVONORGESTREL
     Dosage: 20 MCG/24HR, CONT
     Route: 015
     Dates: start: 201112, end: 20161230

REACTIONS (6)
  - Idiopathic intracranial hypertension [None]
  - Migraine [None]
  - Vision blurred [None]
  - Encephalocele [None]
  - Tinnitus [None]
  - Papilloedema [None]

NARRATIVE: CASE EVENT DATE: 20161215
